FAERS Safety Report 9886430 (Version 2)
Quarter: 2014Q1

REPORT INFORMATION
  Report Type: Spontaneous
  Country: US (occurrence: US)
  Receive Date: 20140210
  Receipt Date: 20140318
  Transmission Date: 20141002
  Serious: No
  Sender: FDA-Public Use
  Company Number: US-TEVA-461613USA

PATIENT
  Age: 25 Year
  Sex: Female
  Weight: 66.74 kg

DRUGS (3)
  1. PARAGARD 380A [Suspect]
     Indication: CONTRACEPTION
     Route: 015
     Dates: start: 20140123, end: 20140128
  2. PARAGARD 380A [Suspect]
     Route: 015
  3. XARELTO [Concomitant]
     Indication: DEEP VEIN THROMBOSIS

REACTIONS (1)
  - Device expulsion [Recovered/Resolved]
